FAERS Safety Report 23144038 (Version 1)
Quarter: 2023Q4

REPORT INFORMATION
  Report Type: Report from Study
  Country: NL (occurrence: NL)
  Receive Date: 20231103
  Receipt Date: 20231103
  Transmission Date: 20240110
  Serious: Yes (Hospitalization, Other)
  Sender: FDA-Public Use
  Company Number: NL-AstraZeneca-2023A245860

PATIENT
  Sex: Male
  Weight: 7.5 kg

DRUGS (2)
  1. SYNAGIS [Suspect]
     Active Substance: PALIVIZUMAB
     Indication: Premature baby
     Dosage: 15MG/KG MONTHLY
     Route: 030
     Dates: start: 20230918
  2. SYNAGIS [Suspect]
     Active Substance: PALIVIZUMAB
     Dosage: 15MG/KG MONTHLY
     Route: 030

REACTIONS (3)
  - Cough [Unknown]
  - Increased upper airway secretion [Unknown]
  - Nasopharyngitis [Unknown]
